FAERS Safety Report 7361335-6 (Version None)
Quarter: 2011Q1

REPORT INFORMATION
  Report Type: 
  Country: None (occurrence: None)
  Receive Date: 20110318
  Receipt Date: 20110310
  Transmission Date: 20110831
  Serious: Yes (Hospitalization)
  Sender: FDA-Public Use
  Company Number: B0705222A

PATIENT
  Sex: Female

DRUGS (3)
  1. CARBOPLATIN [Suspect]
     Indication: OVARIAN CANCER METASTATIC
     Dosage: 300MG PER DAY
     Route: 042
     Dates: start: 20110118, end: 20110118
  2. SOLU-MEDROL [Concomitant]
     Dosage: 53MG CUMULATIVE DOSE
     Route: 042
     Dates: start: 20110118, end: 20110118
  3. ZOPHREN [Suspect]
     Dosage: 8MG PER DAY
     Route: 042
     Dates: start: 20110118, end: 20110118

REACTIONS (4)
  - RASH [None]
  - PALMAR-PLANTAR ERYTHRODYSAESTHESIA SYNDROME [None]
  - PARAESTHESIA [None]
  - PRURITUS [None]
